FAERS Safety Report 11104032 (Version 1)
Quarter: 2015Q2

REPORT INFORMATION
  Report Type: Spontaneous
  Country: CO (occurrence: CO)
  Receive Date: 20150511
  Receipt Date: 20150511
  Transmission Date: 20150821
  Serious: Yes (Death, Other)
  Sender: FDA-Public Use
  Company Number: CO-GLAXOSMITHKLINE-CO2015GSK062485

PATIENT
  Age: 54 Year
  Sex: Female

DRUGS (3)
  1. METHOTREXATE [Concomitant]
     Active Substance: METHOTREXATE
  2. CHLOROQUINE [Concomitant]
     Active Substance: CHLOROQUINE\CHLOROQUINE PHOSPHATE
  3. BENLYSTA [Suspect]
     Active Substance: BELIMUMAB
     Indication: PRODUCT USED FOR UNKNOWN INDICATION
     Dosage: 10 MG/KG, UNK
     Route: 042
     Dates: start: 20141111

REACTIONS (1)
  - Sepsis [Fatal]
